FAERS Safety Report 11122194 (Version 4)
Quarter: 2015Q3

REPORT INFORMATION
  Report Type: Spontaneous
  Country: AR (occurrence: AR)
  Receive Date: 20150519
  Receipt Date: 20150803
  Transmission Date: 20151125
  Serious: Yes (Other)
  Sender: FDA-Public Use
  Company Number: AR-PFIZER INC-2015166412

PATIENT
  Age: 58 Year
  Sex: Male

DRUGS (7)
  1. ACIFOL [Concomitant]
     Dosage: UNK
     Dates: start: 201506
  2. XELJANZ [Suspect]
     Active Substance: TOFACITINIB CITRATE
     Indication: RHEUMATOID ARTHRITIS
     Dosage: 5 MG, 2X/DAY
     Dates: start: 20141009, end: 201502
  3. SOMIT [Concomitant]
     Dosage: UNK
     Dates: start: 2014
  4. ASPIRINETAS [Concomitant]
     Active Substance: ASPIRIN
     Dosage: UNK
     Dates: start: 2014
  5. MOPERIDONA [Concomitant]
     Dosage: UNK
     Dates: start: 2014
  6. FILTEN [Concomitant]
     Dosage: UNK
     Dates: start: 2014
  7. SPIRONOLACTONE A L [Concomitant]
     Active Substance: SPIRONOLACTONE

REACTIONS (5)
  - Platelet disorder [Not Recovered/Not Resolved]
  - Pain [Unknown]
  - Osteoarthritis [Unknown]
  - Condition aggravated [Unknown]
  - Gait disturbance [Unknown]

NARRATIVE: CASE EVENT DATE: 2015
